FAERS Safety Report 9237100 (Version 1)
Quarter: 2013Q2

REPORT INFORMATION
  Report Type: Spontaneous
  Country: BR (occurrence: BR)
  Receive Date: 20130417
  Receipt Date: 20130417
  Transmission Date: 20140414
  Serious: Yes (Other)
  Sender: FDA-Public Use
  Company Number: PHHY2013BR036401

PATIENT
  Age: 80 Year
  Sex: 0

DRUGS (2)
  1. ACETYLSALICYLIC ACID [Suspect]
  2. WARFARIN [Interacting]

REACTIONS (2)
  - Gastrointestinal haemorrhage [Unknown]
  - Drug interaction [Unknown]
